FAERS Safety Report 9409041 (Version 2)
Quarter: 2013Q4

REPORT INFORMATION
  Report Type: Spontaneous
  Country: CA (occurrence: CA)
  Receive Date: 20130719
  Receipt Date: 20131114
  Transmission Date: 20140711
  Serious: Yes (Other)
  Sender: FDA-Public Use
  Company Number: CA-BIOGENIDEC-2013BI064976

PATIENT
  Age: 36 Year
  Sex: Female

DRUGS (2)
  1. TECFIDERA [Suspect]
     Indication: MULTIPLE SCLEROSIS
     Route: 048
     Dates: start: 20130612
  2. TECFIDERA [Suspect]
     Indication: MULTIPLE SCLEROSIS
     Route: 048
     Dates: start: 201307

REACTIONS (5)
  - Feeling hot [Recovered/Resolved]
  - Erythema [Recovered/Resolved]
  - Prescribed underdose [Recovered/Resolved]
  - Pericarditis [Recovered/Resolved]
  - Blood pressure decreased [Recovered/Resolved]
